FAERS Safety Report 16686418 (Version 2)
Quarter: 2019Q4

REPORT INFORMATION
  Report Type: Spontaneous
  Country: US (occurrence: US)
  Receive Date: 20190809
  Receipt Date: 20191108
  Transmission Date: 20200122
  Serious: No
  Sender: FDA-Public Use
  Company Number: US-TAKEDA-2019TUS047240

PATIENT
  Age: 58 Year
  Sex: Male

DRUGS (1)
  1. BRIGATINIB [Suspect]
     Active Substance: BRIGATINIB
     Indication: BRAIN NEOPLASM MALIGNANT
     Dosage: 180 MILLIGRAM, QD
     Route: 048
     Dates: start: 201907

REACTIONS (4)
  - Product dose omission [Unknown]
  - Blood creatine phosphokinase increased [Unknown]
  - Influenza [Unknown]
  - Vomiting [Unknown]

NARRATIVE: CASE EVENT DATE: 20190805
